FAERS Safety Report 11635910 (Version 1)
Quarter: 2015Q4

REPORT INFORMATION
  Report Type: Report from Study
  Country: None (occurrence: DK)
  Receive Date: 20151016
  Receipt Date: 20151016
  Transmission Date: 20160304
  Serious: Yes (Death)
  Sender: FDA-Public Use
  Company Number: DK-TEVA-599998ACC

PATIENT
  Age: 35 Year
  Sex: Female
  Weight: 79 kg

DRUGS (8)
  1. QUETIAPINE FUMARATE. [Suspect]
     Active Substance: QUETIAPINE FUMARATE
     Route: 048
  2. OXAZEPAM. [Concomitant]
     Active Substance: OXAZEPAM
  3. FLUOXETINE [Suspect]
     Active Substance: FLUOXETINE HYDROCHLORIDE
  4. ALPRAZOLAM. [Concomitant]
     Active Substance: ALPRAZOLAM
  5. LAMOTRIGINE. [Concomitant]
     Active Substance: LAMOTRIGINE
  6. CHLORDIAZEPOXIDE [Concomitant]
     Active Substance: CHLORDIAZEPOXIDE
  7. CHLORPROTHIXENE [Suspect]
     Active Substance: CHLORPROTHIXENE
  8. ETHANOL [Concomitant]
     Active Substance: ALCOHOL

REACTIONS (1)
  - Toxicity to various agents [Fatal]
